FAERS Safety Report 17351904 (Version 1)
Quarter: 2020Q1

REPORT INFORMATION
  Report Type: Spontaneous
  Country: GB (occurrence: GB)
  Receive Date: 20200130
  Receipt Date: 20200130
  Transmission Date: 20200409
  Serious: Yes (Death, Hospitalization, Other)
  Sender: FDA-Public Use
  Company Number: NVSC2020GB012048

PATIENT
  Age: 69 Year
  Sex: Female
  Weight: 60 kg

DRUGS (10)
  1. LITHIUM. [Concomitant]
     Active Substance: LITHIUM
     Indication: BIPOLAR DISORDER
     Dosage: UNK
     Route: 048
  2. OLANZAPINE. [Suspect]
     Active Substance: OLANZAPINE
     Dosage: 25 MG
     Route: 048
     Dates: start: 20170525
  3. RAMIPRIL. [Concomitant]
     Active Substance: RAMIPRIL
     Indication: HYPERTENSION
     Dosage: UNK
     Route: 048
  4. SODIUM VALPROATE [Concomitant]
     Active Substance: VALPROATE SODIUM
     Indication: PRODUCT USED FOR UNKNOWN INDICATION
     Dosage: UNK
     Route: 048
  5. OLANZAPINE. [Suspect]
     Active Substance: OLANZAPINE
     Dosage: 25 MG
     Route: 048
     Dates: start: 20170523
  6. CARBAMAZEPINE. [Concomitant]
     Active Substance: CARBAMAZEPINE
     Indication: PRODUCT USED FOR UNKNOWN INDICATION
     Dosage: UNK
     Route: 065
     Dates: start: 20170317
  7. OLANZAPINE. [Suspect]
     Active Substance: OLANZAPINE
     Indication: PRODUCT USED FOR UNKNOWN INDICATION
     Dosage: 60 MG, QD (30 MILLIGRAM, TWO TIMES A DAY)
     Route: 048
     Dates: start: 20170317
  8. OLANZAPINE. [Suspect]
     Active Substance: OLANZAPINE
     Dosage: 27.5 MG
     Route: 048
     Dates: start: 20170523
  9. OLANZAPINE. [Suspect]
     Active Substance: OLANZAPINE
     Dosage: 30 MG
     Route: 048
     Dates: start: 20170525
  10. OLANZAPINE. [Suspect]
     Active Substance: OLANZAPINE
     Dosage: 5 MG
     Route: 048
     Dates: start: 20170317

REACTIONS (14)
  - Pneumonia [Fatal]
  - Head injury [Unknown]
  - Aspiration [Unknown]
  - Lower respiratory tract infection [Recovered/Resolved]
  - Overdose [Fatal]
  - Hyponatraemia [Unknown]
  - Acute respiratory failure [Unknown]
  - Hypotension [Recovered/Resolved]
  - Contraindicated product administered [Unknown]
  - Choking [Recovered/Resolved]
  - Urinary tract infection [Unknown]
  - Dysphagia [Recovered/Resolved]
  - Dysplasia [Recovered/Resolved]
  - Fall [Recovered/Resolved]

NARRATIVE: CASE EVENT DATE: 20170317
